FAERS Safety Report 4807421-3 (Version None)
Quarter: 2005Q4

REPORT INFORMATION
  Report Type: 
  Country: None (occurrence: None)
  Receive Date: 20051024
  Receipt Date: 20050718
  Transmission Date: 20060501
  Serious: Yes (Hospitalization)
  Sender: FDA-Public Use
  Company Number: US-MERCK-0507USA02949

PATIENT
  Age: 60 Year
  Sex: Female
  Weight: 66 kg

DRUGS (10)
  1. VIOXX [Suspect]
     Indication: OSTEOARTHRITIS
     Route: 048
     Dates: start: 20010201, end: 20040901
  2. VIOXX [Suspect]
     Route: 048
     Dates: start: 20010201, end: 20040901
  3. VIOXX [Suspect]
     Indication: PAIN IN EXTREMITY
     Route: 048
     Dates: start: 20010201, end: 20040901
  4. VIOXX [Suspect]
     Route: 048
     Dates: start: 20010201, end: 20040901
  5. LITHIUM CITRATE [Concomitant]
     Indication: BIPOLAR DISORDER
     Route: 065
  6. LEVOTHROID [Concomitant]
     Indication: HYPOTHYROIDISM
     Route: 065
  7. VALTREX [Concomitant]
     Route: 048
  8. TRILEPTAL [Concomitant]
     Route: 048
  9. ACETAMINOPHEN AND HYDROCODONE BITARTRATE [Concomitant]
     Indication: PAIN
     Route: 065
     Dates: start: 20011106, end: 20020318
  10. SYNTHROID [Concomitant]
     Route: 065
     Dates: start: 19820101

REACTIONS (11)
  - ACUTE MYOCARDIAL INFARCTION [None]
  - BLOOD CHOLESTEROL INCREASED [None]
  - BLOOD THYROID STIMULATING HORMONE DECREASED [None]
  - BLOOD TRIGLYCERIDES INCREASED [None]
  - CORONARY ARTERY DISEASE [None]
  - DIABETES MELLITUS NON-INSULIN-DEPENDENT [None]
  - DIZZINESS [None]
  - FIBROSARCOMA [None]
  - GASTROOESOPHAGEAL REFLUX DISEASE [None]
  - HYPERTENSION [None]
  - VERTIGO POSITIONAL [None]
